FAERS Safety Report 14006435 (Version 1)
Quarter: 2017Q3

REPORT INFORMATION
  Report Type: Report from Study
  Country: None (occurrence: CA)
  Receive Date: 20170925
  Receipt Date: 20170925
  Transmission Date: 20171128
  Serious: Yes (Other)
  Sender: FDA-Public Use
  Company Number: CA-ABBVIE-17K-028-2108059-00

PATIENT
  Sex: Male

DRUGS (2)
  1. IMURAN (NON-ABBVIE) [Concomitant]
     Indication: CROHN^S DISEASE
  2. HUMIRA [Suspect]
     Active Substance: ADALIMUMAB
     Indication: CROHN^S DISEASE
     Route: 058
     Dates: start: 20160824

REACTIONS (2)
  - Drug ineffective [Not Recovered/Not Resolved]
  - Bladder neoplasm [Not Recovered/Not Resolved]
